FAERS Safety Report 8112449-4 (Version None)
Quarter: 2012Q1

REPORT INFORMATION
  Report Type: 
  Country: None (occurrence: None)
  Receive Date: 20120203
  Receipt Date: 20120201
  Transmission Date: 20120608
  Serious: Yes (Other)
  Sender: FDA-Public Use
  Company Number: CA-ROCHE-1036145

PATIENT
  Sex: Male
  Weight: 77.3 kg

DRUGS (11)
  1. ATENOLOL [Concomitant]
     Route: 048
  2. TYLENOL W/ CODEINE NO. 3 [Concomitant]
     Indication: RHEUMATOID ARTHRITIS
     Dosage: 3-4 TABLETS ONCE DAILY
     Route: 048
  3. PERINDOPRIL ERBUMINE [Concomitant]
     Route: 048
  4. OMEPRAZOLE [Concomitant]
     Route: 048
  5. VITAMIN D [Concomitant]
     Route: 048
  6. CALCITONIN SALMON [Concomitant]
     Route: 045
  7. RITUXAN [Suspect]
     Indication: RHEUMATOID ARTHRITIS
     Dosage: DAY 1 AND DAY 15 EVERY 6 MONTHS
     Route: 042
     Dates: start: 20070601
  8. PREDNISONE TAB [Concomitant]
     Indication: RHEUMATOID ARTHRITIS
     Route: 048
  9. CALCIUM CITRATE [Concomitant]
     Dosage: 1 TABLET TWICE DAILY
     Route: 048
  10. LASIX [Concomitant]
     Route: 048
  11. ALLOPURINOL [Concomitant]
     Route: 048

REACTIONS (1)
  - OPEN WOUND [None]
